FAERS Safety Report 11212809 (Version 1)
Quarter: 2015Q2

REPORT INFORMATION
  Report Type: Spontaneous
  Country: US (occurrence: US)
  Receive Date: 20150623
  Receipt Date: 20150623
  Transmission Date: 20150821
  Serious: Yes (Other)
  Sender: FDA-Public Use
  Company Number: US-ASTRAZENECA-2015SE59851

PATIENT
  Sex: Male
  Weight: 60.3 kg

DRUGS (8)
  1. QUINIPRIL [Concomitant]
  2. ACTOS [Concomitant]
     Active Substance: PIOGLITAZONE HYDROCHLORIDE
     Dates: end: 201506
  3. VICTOZA [Concomitant]
     Active Substance: LIRAGLUTIDE
  4. ATORVASTATIN [Concomitant]
     Active Substance: ATORVASTATIN
  5. FARXIGA [Suspect]
     Active Substance: DAPAGLIFLOZIN PROPANEDIOL
     Indication: TYPE 2 DIABETES MELLITUS
     Route: 048
     Dates: start: 201407, end: 201506
  6. GLIMEPERIDE [Concomitant]
     Active Substance: GLIMEPIRIDE
  7. METFORMIN [Concomitant]
     Active Substance: METFORMIN HYDROCHLORIDE
  8. ASPIRIN. [Concomitant]
     Active Substance: ASPIRIN

REACTIONS (3)
  - Haematuria [Recovering/Resolving]
  - Bladder cancer [Unknown]
  - Therapy cessation [Unknown]

NARRATIVE: CASE EVENT DATE: 201504
